FAERS Safety Report 4982657-X (Version None)
Quarter: 2006Q2

REPORT INFORMATION
  Report Type: 
  Country: None (occurrence: None)
  Receive Date: 20060420
  Receipt Date: 20060407
  Transmission Date: 20061013
  Serious: Yes (Death, Hospitalization)
  Sender: FDA-Public Use
  Company Number: CERZ-11141

PATIENT
  Age: 76 Year
  Sex: Female
  Weight: 46.1 kg

DRUGS (4)
  1. CEREZYME [Suspect]
     Indication: GAUCHER'S DISEASE
     Dosage: 2800 UNITS Q2WKS IV
     Route: 042
     Dates: start: 20020401, end: 20060202
  2. ALTACE [Concomitant]
  3. ACTONEL [Concomitant]
  4. XALATAN [Concomitant]

REACTIONS (6)
  - MULTI-ORGAN FAILURE [None]
  - MYOCARDIAL INFARCTION [None]
  - PNEUMONIA [None]
  - RENAL FAILURE ACUTE [None]
  - RESPIRATORY FAILURE [None]
  - URINARY TRACT INFECTION [None]
